FAERS Safety Report 12615276 (Version 6)
Quarter: 2020Q1

REPORT INFORMATION
  Report Type: Spontaneous
  Country: AT (occurrence: AT)
  Receive Date: 20160802
  Receipt Date: 20200211
  Transmission Date: 20200409
  Serious: Yes (Hospitalization, Other)
  Sender: FDA-Public Use
  Company Number: AT-SYNTHON BV-NL01PV16_41558

PATIENT
  Age: 66 Year
  Sex: Male
  Weight: 93 kg

DRUGS (11)
  1. ALNA [Suspect]
     Active Substance: TAMSULOSIN HYDROCHLORIDE
     Indication: PRODUCT USED FOR UNKNOWN INDICATION
     Dosage: UNK
     Route: 065
     Dates: start: 2016, end: 201607
  2. ACEMIN [CHLORPROMAZINE HYDROCHLORIDE] [Suspect]
     Active Substance: CHLORPROMAZINE HYDROCHLORIDE
     Indication: PRODUCT USED FOR UNKNOWN INDICATION
     Dosage: 10 MILLIGRAM
     Route: 048
  3. ELIQUIS [Suspect]
     Active Substance: APIXABAN
     Indication: PRODUCT USED FOR UNKNOWN INDICATION
     Dosage: 5 MG, BID
     Route: 065
     Dates: start: 201602, end: 201607
  4. SIMVASTATIN. [Suspect]
     Active Substance: SIMVASTATIN
     Indication: PRODUCT USED FOR UNKNOWN INDICATION
     Dosage: 20 MG, UNK
     Route: 065
     Dates: start: 2016
  5. ZOLPIDEM [Suspect]
     Active Substance: ZOLPIDEM TARTRATE
     Indication: PRODUCT USED FOR UNKNOWN INDICATION
     Dosage: 20 MILLIGRAM
     Route: 065
     Dates: start: 2016
  6. NICOTINELL [Suspect]
     Active Substance: NICOTINE
     Indication: PRODUCT USED FOR UNKNOWN INDICATION
     Dosage: UNK
     Route: 065
     Dates: start: 2016, end: 201607
  7. ACEMIN [LISINOPRIL] [Suspect]
     Active Substance: LISINOPRIL
     Indication: PRODUCT USED FOR UNKNOWN INDICATION
     Dosage: UNK
  8. VOLTAREN [DICLOFENAC DIETHYLAMINE] [Suspect]
     Active Substance: DICLOFENAC DIETHYLAMINE
     Indication: INTERVERTEBRAL DISC OPERATION
     Dosage: UNK
     Dates: start: 2016
  9. HEPARIN [Suspect]
     Active Substance: HEPARIN SODIUM
     Indication: PRODUCT USED FOR UNKNOWN INDICATION
     Dosage: UNK
     Dates: start: 2016
  10. THROMBO ASS [Suspect]
     Active Substance: ASPIRIN
     Indication: PRODUCT USED FOR UNKNOWN INDICATION
     Dosage: UNK
     Route: 065
     Dates: start: 2016, end: 201607
  11. XEFO [Suspect]
     Active Substance: LORNOXICAM
     Indication: INTERVERTEBRAL DISC OPERATION
     Dosage: UNK
     Route: 065
     Dates: start: 2016

REACTIONS (9)
  - Cerebral haemorrhage [Unknown]
  - Cerebral infarction [Recovered/Resolved]
  - Off label use [Unknown]
  - Dizziness [Unknown]
  - Cerebrovascular accident [Unknown]
  - Ischaemic stroke [Unknown]
  - Cerebral ischaemia [Unknown]
  - Headache [Recovered/Resolved]
  - Contraindicated product administered [Unknown]

NARRATIVE: CASE EVENT DATE: 20160223
